FAERS Safety Report 8479812-3 (Version None)
Quarter: 2012Q2

REPORT INFORMATION
  Report Type: 
  Country: None (occurrence: None)
  Receive Date: 20120629
  Receipt Date: 20120618
  Transmission Date: 20120825
  Serious: Yes (Other)
  Sender: FDA-Public Use
  Company Number: ZA-ELI_LILLY_AND_COMPANY-ZA201206006520

PATIENT
  Sex: Male

DRUGS (9)
  1. ANTIDEPRESSANTS [Concomitant]
     Indication: DEPRESSION
     Dosage: 1 DF, EACH MORNING
     Route: 048
  2. HUMULIN 70/30 [Suspect]
     Indication: DIABETES MELLITUS
     Dosage: 76 U, EACH MORNING
     Route: 058
  3. BEZAFIBRATE [Concomitant]
     Dosage: 400 MG, EACH EVENING
     Route: 048
  4. AMLODIPINE [Concomitant]
     Dosage: 5 MG, EACH EVENING
     Route: 048
  5. CARDURA [Concomitant]
     Dosage: 1 DF, EACH EVENING
     Route: 048
  6. HUMULIN 70/30 [Suspect]
     Dosage: 38 U, EACH EVENING
     Route: 058
  7. SIMVOTIN [Concomitant]
     Dosage: 1 DF, EACH EVENING
     Route: 048
  8. ACETYLSALICYLIC ACID SRT [Concomitant]
     Indication: CARDIOVASCULAR EVENT PROPHYLAXIS
     Dosage: .5 DF, EACH EVENING
     Route: 048
  9. OMEZ                               /00661201/ [Concomitant]
     Indication: ANTACID THERAPY
     Dosage: 20 MG, EACH MORNING
     Route: 048

REACTIONS (1)
  - CHOLECYSTECTOMY [None]
